FAERS Safety Report 9657368 (Version 1)
Quarter: 2013Q4

REPORT INFORMATION
  Report Type: Spontaneous
  Country: US (occurrence: US)
  Receive Date: 20131030
  Receipt Date: 20131030
  Transmission Date: 20140711
  Serious: No
  Sender: FDA-Public Use
  Company Number: US-PFIZER INC-2013306319

PATIENT
  Sex: Male

DRUGS (2)
  1. ZYVOX [Suspect]
     Dosage: UNK
  2. VANCOMYCIN HCL [Suspect]
     Dosage: UNK

REACTIONS (1)
  - Cardiomyopathy [Unknown]
